FAERS Safety Report 20658873 (Version 1)
Quarter: 2022Q1

REPORT INFORMATION
  Report Type: Spontaneous
  Country: US (occurrence: US)
  Receive Date: 20220331
  Receipt Date: 20220331
  Transmission Date: 20220424
  Serious: No
  Sender: FDA-Public Use
  Company Number: US-PFIZER INC-202200447593

PATIENT
  Sex: Female

DRUGS (1)
  1. LIOTHYRONINE SODIUM [Suspect]
     Active Substance: LIOTHYRONINE SODIUM
     Dosage: UNK

REACTIONS (5)
  - Memory impairment [Unknown]
  - Gait disturbance [Unknown]
  - Thinking abnormal [Unknown]
  - Drug hypersensitivity [Unknown]
  - Illness [Unknown]
